FAERS Safety Report 5646677-4 (Version None)
Quarter: 2008Q1

REPORT INFORMATION
  Report Type: 
  Country: None (occurrence: None)
  Receive Date: 20080303
  Receipt Date: 20080225
  Transmission Date: 20080703
  Serious: Yes (Other)
  Sender: FDA-Public Use
  Company Number: PHNU2008DE01040

PATIENT
  Age: 69 Year
  Sex: Female

DRUGS (1)
  1. ACLASTA [Suspect]
     Dosage: 5 MG, ONCE/SINGLE
     Route: 042
     Dates: start: 20080129, end: 20080129

REACTIONS (6)
  - DEAFNESS [None]
  - DIZZINESS [None]
  - HEADACHE [None]
  - NECK PAIN [None]
  - PYREXIA [None]
  - TINNITUS [None]
